FAERS Safety Report 9667946 (Version 1)
Quarter: 2013Q4

REPORT INFORMATION
  Report Type: Spontaneous
  Country: US (occurrence: US)
  Receive Date: 20131104
  Receipt Date: 20131104
  Transmission Date: 20140711
  Serious: Yes (Death, Other)
  Sender: FDA-Public Use
  Company Number: US-ROXANE LABORATORIES, INC.-2013-RO-01763RO

PATIENT
  Age: 43 Year
  Sex: Male

DRUGS (1)
  1. DONEPEZIL HYDROCHLORIDE [Suspect]
     Indication: FRONTOTEMPORAL DEMENTIA

REACTIONS (2)
  - Death [Fatal]
  - Confusional state [Recovered/Resolved]
